FAERS Safety Report 9304578 (Version 2)
Quarter: 2013Q2

REPORT INFORMATION
  Report Type: Report from Study
  Country: US (occurrence: US)
  Receive Date: 20130523
  Receipt Date: 20130627
  Transmission Date: 20140414
  Serious: Yes (Hospitalization)
  Sender: FDA-Public Use
  Company Number: US-ROCHE-1226195

PATIENT
  Age: 55 Year
  Sex: Male
  Weight: 79.3 kg

DRUGS (13)
  1. BEVACIZUMAB [Suspect]
     Indication: GLIOBLASTOMA
     Dosage: DATE OF LAST DOSE OF BEVACIZUMAB WAS ADMINISTERED PRIOR TO SERIOUS ADVERSE EVENT: 13/JUN/2012
     Route: 065
     Dates: start: 20120613, end: 20130513
  2. TEMOZOLOMIDE [Suspect]
     Indication: GLIOBLASTOMA
     Dosage: FOR 5 DAYS
     Route: 048
     Dates: start: 20130309, end: 20130513
  3. GLIADEL [Suspect]
     Indication: PRODUCT USED FOR UNKNOWN INDICATION
     Route: 065
  4. KEPPRA [Concomitant]
     Route: 065
  5. NEXIUM [Concomitant]
     Route: 065
  6. LOSARTAN [Concomitant]
     Route: 065
  7. VYTORIN [Concomitant]
     Route: 065
  8. METFORMIN [Concomitant]
     Route: 065
  9. SYMBICORT [Concomitant]
     Route: 065
  10. GLYBURIDE [Concomitant]
     Route: 065
  11. PIOGLITAZONE [Concomitant]
     Route: 065
  12. ONGLYZA [Concomitant]
     Route: 065
  13. TIMOLOL [Concomitant]
     Route: 065

REACTIONS (1)
  - Confusional state [Unknown]
